FAERS Safety Report 5797544-7 (Version None)
Quarter: 2008Q2

REPORT INFORMATION
  Report Type: 
  Country: None (occurrence: None)
  Receive Date: 20080618
  Receipt Date: 20071030
  Transmission Date: 20081010
  Serious: Yes (Other)
  Sender: FDA-Public Use
  Company Number: 200716867US

PATIENT
  Age: 48 Year
  Sex: Female

DRUGS (12)
  1. LANTUS [Suspect]
     Indication: TYPE 2 DIABETES MELLITUS
     Dosage: 50 U QAM
     Dates: start: 20061130
  2. OPTICLIK [Suspect]
     Dates: start: 20060101
  3. METFORMIN HCL [Concomitant]
  4. GABAPENTIN [Concomitant]
  5. VENLAFAXINE HCL [Concomitant]
  6. TOCOPHERYL ACETATE (VITAMIN E) [Concomitant]
  7. ZOCOR [Concomitant]
  8. ASPIRIN [Concomitant]
  9. APIDRA [Concomitant]
  10. ASCORBIC CID, BIOTIN, TOCOPHEROL, NICOTINIC ACID, RETINOL, MINERALS NO [Concomitant]
  11. VITAMINS /01549301/) [Concomitant]
  12. CHLORPROPAMIDE (DIABETES) [Concomitant]

REACTIONS (3)
  - BLOOD GLUCOSE INCREASED [None]
  - HYPOGLYCAEMIC UNCONSCIOUSNESS [None]
  - OVERDOSE [None]
